FAERS Safety Report 4690537-2 (Version None)
Quarter: 2005Q2

REPORT INFORMATION
  Report Type: 
  Country: None (occurrence: None)
  Receive Date: 20050613
  Receipt Date: 20050527
  Transmission Date: 20051028
  Serious: Yes (Hospitalization)
  Sender: FDA-Public Use
  Company Number: 430001E04ITA

PATIENT
  Age: 41 Year
  Sex: Male

DRUGS (19)
  1. NOVANTRONE [Suspect]
     Indication: ACUTE PROMYELOCYTIC LEUKAEMIA
     Dosage: 11 MG, 1 IN 1 DAYS
     Dates: start: 20040807, end: 20040811
  2. TRETINOIN [Suspect]
     Indication: ACUTE PROMYELOCYTIC LEUKAEMIA
     Dosage: 80 MG, 1 IN 1 DAYS
     Dates: start: 20040807, end: 20040821
  3. CHEMOTHERAPEUTIC AGENTS, CONTROL FOR GEMTUZUMAB [Suspect]
     Indication: ACUTE PROMYELOCYTIC LEUKAEMIA
  4. AMIKACIN [Concomitant]
  5. TEICOPLANIN [Concomitant]
  6. ELECTROLYTE SOLUTIONS [Concomitant]
  7. FOLIC ACID [Concomitant]
  8. METHYLPREDNISOLONE [Concomitant]
  9. TRAMADOL HCL [Concomitant]
  10. TRANEXAMIC ACID [Concomitant]
  11. FLUCONAZOLE [Concomitant]
  12. ACETAMINOPHEN [Concomitant]
  13. METRONIDAZOLE [Concomitant]
  14. PRIMAXIN [Concomitant]
  15. KETOROLAC [Concomitant]
  16. LEVOFLOXACIN [Concomitant]
  17. DOXYCYCLINE HYCLATE [Concomitant]
  18. PREDNISONE TAB [Concomitant]
  19. PIP/TAZO [Concomitant]

REACTIONS (4)
  - DEEP VEIN THROMBOSIS [None]
  - PSEUDOMONAS INFECTION [None]
  - PYODERMA [None]
  - STAPHYLOCOCCAL SEPSIS [None]
